FAERS Safety Report 5639309-2 (Version None)
Quarter: 2008Q1

REPORT INFORMATION
  Report Type: 
  Country: None (occurrence: None)
  Receive Date: 20080226
  Receipt Date: 20080214
  Transmission Date: 20080703
  Serious: Yes (Other)
  Sender: FDA-Public Use
  Company Number: GB-PFIZER INC-2008014737

PATIENT
  Age: 70 Year
  Sex: Male

DRUGS (3)
  1. CABERGOLINE [Suspect]
     Indication: PARKINSON'S DISEASE
     Route: 048
     Dates: start: 20020101, end: 20080101
  2. SELEGILINE HCL [Concomitant]
     Indication: PARKINSON'S DISEASE
     Dosage: DAILY DOSE:10MG
     Route: 048
  3. SINEMET [Concomitant]
     Indication: PARKINSON'S DISEASE
     Route: 048

REACTIONS (3)
  - AORTIC STENOSIS [None]
  - LEFT VENTRICULAR HYPERTROPHY [None]
  - PULMONARY HYPERTENSION [None]
